FAERS Safety Report 24657494 (Version 1)
Quarter: 2024Q4

REPORT INFORMATION
  Report Type: Spontaneous
  Country: CH (occurrence: CH)
  Receive Date: 20241125
  Receipt Date: 20241125
  Transmission Date: 20250114
  Serious: Yes (Hospitalization)
  Sender: SANDOZ
  Company Number: None

PATIENT
  Age: 68 Year
  Sex: Male

DRUGS (21)
  1. AMISULPRIDE [Suspect]
     Active Substance: AMISULPRIDE
     Indication: Hyponatraemia
     Dosage: 150 MG N/A DOSE EVERY 12 HOUR
     Route: 065
  2. ESOMEPRAZOLE [Suspect]
     Active Substance: ESOMEPRAZOLE
     Indication: Hyponatraemia
     Dosage: 40 MG N/A DOSE EVERY 1 DAY
     Route: 065
     Dates: start: 202211
  3. ESOMEPRAZOLE [Suspect]
     Active Substance: ESOMEPRAZOLE
     Indication: Inappropriate antidiuretic hormone secretion
  4. IRBESARTAN [Suspect]
     Active Substance: IRBESARTAN
     Indication: Hyponatraemia
     Dosage: 150 MG N/A DOSE EVERY 1 DAY
     Route: 065
  5. TRAZODONE [Suspect]
     Active Substance: TRAZODONE HYDROCHLORIDE
     Indication: Hyponatraemia
     Dosage: 50 MG N/A DOSE EVERY 1 DAY
     Route: 065
     Dates: start: 2019
  6. ASPIRIN [Concomitant]
     Active Substance: ASPIRIN
     Indication: Hyperkalaemia
     Dosage: 100 MG N/A DOSE EVERY 1 DAY
     Route: 065
  7. ATENOLOL [Concomitant]
     Active Substance: ATENOLOL
     Indication: Product used for unknown indication
     Dosage: 50 MG N/A DOSE EVERY 1 DAY
     Route: 065
  8. BIPERIDEN [Concomitant]
     Active Substance: BIPERIDEN
     Indication: Hyperkalaemia
     Dosage: 2 MG N/A DOSE EVERY 1 DAY
     Route: 065
  9. Calcimagon D3 Forte [Concomitant]
     Indication: Hyperkalaemia
     Dosage: 1 CELLS N/A DOSE EVERY 1 DAY
     Route: 065
  10. DAPAGLIFLOZIN [Concomitant]
     Active Substance: DAPAGLIFLOZIN
     Indication: Product used for unknown indication
     Dosage: 10 MG N/A DOSE EVERY 1 DAY
     Route: 065
  11. DESLORATADINE [Concomitant]
     Active Substance: DESLORATADINE
     Indication: Product used for unknown indication
     Dosage: 5 MG N/A DOSE EVERY N/A AS NECESSARY
     Route: 065
  12. DUTASTERIDE\TAMSULOSIN HYDROCHLORIDE [Concomitant]
     Active Substance: DUTASTERIDE\TAMSULOSIN HYDROCHLORIDE
     Indication: Inappropriate antidiuretic hormone secretion
     Dosage: 1 CELLS N/A DOSE EVERY 1 DAY
     Route: 065
  13. FICUS CARICA EXTRACT [Concomitant]
     Indication: Product used for unknown indication
     Dosage: 15 ML N/A DOSE EVERY 1 DAY
     Route: 065
  14. IBUPROFEN [Concomitant]
     Active Substance: IBUPROFEN
     Indication: Product used for unknown indication
     Dosage: MAX 3X/D
     Route: 065
  15. IRON [Concomitant]
     Active Substance: IRON
     Indication: Inappropriate antidiuretic hormone secretion
     Dosage: 100 MG N/A DOSE EVERY 1 DAY
     Route: 065
  16. POLYETHYLENE GLYCOLS [Concomitant]
     Active Substance: POLYETHYLENE GLYCOLS
     Indication: Product used for unknown indication
     Dosage: N/A N/A N/A DOSE EVERY N/A AS NECESSARY
     Route: 065
  17. METFORMIN [Concomitant]
     Active Substance: METFORMIN HYDROCHLORIDE
     Indication: Product used for unknown indication
     Dosage: 1000 MG N/A DOSE EVERY 12 HOUR
     Route: 065
  18. NICOTINE [Concomitant]
     Active Substance: NICOTINE
     Indication: Product used for unknown indication
     Dosage: N/A N/A N/A DOSE EVERY N/A AS NECESSARY
     Route: 065
  19. ACETAMINOPHEN [Concomitant]
     Active Substance: ACETAMINOPHEN
     Indication: Product used for unknown indication
     Dosage: MAX 3X/D
     Route: 065
  20. ROSUVASTATIN [Concomitant]
     Active Substance: ROSUVASTATIN
     Indication: Inappropriate antidiuretic hormone secretion
     Dosage: 10 MG N/A DOSE EVERY N/A N/A
     Route: 065
  21. SOLIFENACIN [Concomitant]
     Active Substance: SOLIFENACIN
     Indication: Product used for unknown indication
     Dosage: N/A N/A N/A DOSE EVERY N/A AS NECESSARY
     Route: 065

REACTIONS (3)
  - Hyponatraemia [Recovered/Resolved]
  - Hyperkalaemia [Recovered/Resolved]
  - Inappropriate antidiuretic hormone secretion [Unknown]

NARRATIVE: CASE EVENT DATE: 20240323
